FAERS Safety Report 20687228 (Version 2)
Quarter: 2022Q2

REPORT INFORMATION
  Report Type: Report from Study
  Country: US (occurrence: US)
  Receive Date: 20220407
  Receipt Date: 20220421
  Transmission Date: 20220721
  Serious: Yes (Death)
  Sender: FDA-Public Use
  Company Number: US-ACADIA PHARMACEUTICALS INC.-ACA-2022-PIM-001124

PATIENT
  Age: 64 Year
  Sex: Male

DRUGS (4)
  1. NUPLAZID [Suspect]
     Active Substance: PIMAVANSERIN TARTRATE
     Indication: Parkinson^s disease
     Dosage: 34 MILLIGRAM, QD
     Route: 048
     Dates: start: 20200430, end: 20220328
  2. DIACEREIN [Suspect]
     Active Substance: DIACEREIN
     Dosage: 5000 WITH DIVIDED BETWEEN BILATERAL PAROTID GLAND
     Dates: start: 20220215
  3. SINEMET [Concomitant]
     Active Substance: CARBIDOPA\LEVODOPA
     Dosage: 25/100
  4. DONEPEZIL [Concomitant]
     Active Substance: DONEPEZIL
     Dosage: 10 MILLIGRAM

REACTIONS (1)
  - Drug hypersensitivity [Fatal]

NARRATIVE: CASE EVENT DATE: 20220328
